FAERS Safety Report 8449968-7 (Version None)
Quarter: 2012Q2

REPORT INFORMATION
  Report Type: 
  Country: None (occurrence: None)
  Receive Date: 20120613
  Receipt Date: 20120606
  Transmission Date: 20120825
  Serious: Yes (Other)
  Sender: FDA-Public Use
  Company Number: AUR-APL-2012-02105

PATIENT
  Age: 40 Year
  Sex: Male
  Weight: 69.39 kg

DRUGS (14)
  1. FIORICET (AXOTAL) [Concomitant]
  2. EFFEXOR [Suspect]
     Indication: PRODUCT USED FOR UNKNOWN INDICATION
     Dosage: 75 MG, 1 D, UNKNOWN
     Dates: start: 20120401
  3. OXYCODONE HCL [Concomitant]
  4. HYDROCHLOROTHIAZIDE [Suspect]
     Indication: BLOOD PRESSURE INCREASED
  5. ALPRAZOLAM [Concomitant]
  6. CYMBALTA [Suspect]
     Indication: ANXIETY
     Dosage: 30 MG;60 MCG ;90 MG;120 MG, 1 D,
     Dates: end: 20120301
  7. CYMBALTA [Suspect]
     Indication: DEPRESSION
     Dosage: 30 MG;60 MCG ;90 MG;120 MG, 1 D,
     Dates: end: 20120301
  8. CYMBALTA [Suspect]
     Indication: PAIN
     Dosage: 30 MG;60 MCG ;90 MG;120 MG, 1 D,
     Dates: end: 20120301
  9. ALISKIREN (ALISKIREN) [Suspect]
     Indication: BLOOD PRESSURE INCREASED
  10. SOMA [Concomitant]
  11. LIPITOR (ATORVASTATIN CALCIUIM) [Concomitant]
  12. AMLODIPINE BESYLATE AND VALSARTAN [Suspect]
     Indication: BLOOD PRESSURE INCREASED
     Dosage: UNKNOWN
  13. CLONIDINE [Suspect]
     Indication: BLOOD PRESSURE INCREASED
  14. FLEXETIL (CYCLOBENZAPRINE HYDROCHLORIDE) [Concomitant]

REACTIONS (12)
  - BLOOD PRESSURE INCREASED [None]
  - DECREASED APPETITE [None]
  - MUSCLE TIGHTNESS [None]
  - MYDRIASIS [None]
  - URINE CALCIUM INCREASED [None]
  - SYNCOPE [None]
  - NOREPINEPHRINE DECREASED [None]
  - BLOOD CORTISOL INCREASED [None]
  - BLOOD CORTICOTROPHIN ABNORMAL [None]
  - RESTLESSNESS [None]
  - MIGRAINE [None]
  - BLOOD CATECHOLAMINES INCREASED [None]
